FAERS Safety Report 9276683 (Version 2)
Quarter: 2013Q2

REPORT INFORMATION
  Report Type: Report from Study
  Country: US (occurrence: US)
  Receive Date: 20130507
  Receipt Date: 20130521
  Transmission Date: 20140414
  Serious: Yes (Hospitalization)
  Sender: FDA-Public Use
  Company Number: PHEH2013US009926

PATIENT
  Age: 59 Year
  Sex: Female

DRUGS (1)
  1. GILENYA [Suspect]
     Indication: MULTIPLE SCLEROSIS
     Dosage: 1 DF, QD
     Route: 048
     Dates: start: 20130430, end: 20130430

REACTIONS (4)
  - Chest pain [Recovered/Resolved]
  - Pain in extremity [Unknown]
  - Heart rate decreased [Recovered/Resolved]
  - Chest discomfort [Unknown]
